FAERS Safety Report 6585604-2 (Version None)
Quarter: 2010Q1

REPORT INFORMATION
  Report Type: 
  Country: None (occurrence: None)
  Receive Date: 20100217
  Receipt Date: 20100205
  Transmission Date: 20100710
  Serious: Yes (Hospitalization)
  Sender: FDA-Public Use
  Company Number: US-ELI_LILLY_AND_COMPANY-US200911002407

PATIENT
  Sex: Female
  Weight: 81.633 kg

DRUGS (5)
  1. BYETTA [Suspect]
     Indication: TYPE 2 DIABETES MELLITUS
     Dosage: 5 UG, 2/D
     Route: 058
     Dates: start: 20050719, end: 20051019
  2. BYETTA [Suspect]
     Dosage: 10 UG, 2/D
     Route: 058
     Dates: start: 20051019, end: 20080728
  3. BYETTA [Suspect]
     Dosage: 5 UG, 2/D
     Dates: start: 20080728
  4. LISINOPRIL [Concomitant]
     Indication: HYPERTENSION
     Dosage: UNK, EACH MORNING
     Route: 048
  5. ASPIRIN [Concomitant]
     Dosage: 80 MG, EACH MORNING
     Route: 048

REACTIONS (8)
  - BLOOD CHOLESTEROL INCREASED [None]
  - BLOOD CREATININE INCREASED [None]
  - BLOOD UREA INCREASED [None]
  - INJURY [None]
  - OSTEOPOROSIS [None]
  - POSTMENOPAUSAL HAEMORRHAGE [None]
  - SPINAL FRACTURE [None]
  - UTERINE PROLAPSE [None]
